FAERS Safety Report 18293947 (Version 1)
Quarter: 2020Q3

REPORT INFORMATION
  Report Type: Spontaneous
  Country: US (occurrence: US)
  Receive Date: 20200922
  Receipt Date: 20200922
  Transmission Date: 20201103
  Serious: Yes (Hospitalization)
  Sender: FDA-Public Use
  Company Number: None

PATIENT
  Age: 63 Year
  Sex: Male

DRUGS (1)
  1. AXICABTAGENE CILOLEUCEL [Suspect]
     Active Substance: AXICABTAGENE CILOLEUCEL
     Indication: DIFFUSE LARGE B-CELL LYMPHOMA
     Dosage: ?          OTHER FREQUENCY:ONCE;?
     Route: 042
     Dates: start: 20191119, end: 20191119

REACTIONS (5)
  - Neurotoxicity [None]
  - Cerebral ischaemia [None]
  - Cerebellar ischaemia [None]
  - Cytokine release syndrome [None]
  - Cardiac ventricular thrombosis [None]

NARRATIVE: CASE EVENT DATE: 20191124
